FAERS Safety Report 5213021-6 (Version None)
Quarter: 2007Q1

REPORT INFORMATION
  Report Type: 
  Country: None (occurrence: None)
  Receive Date: 20070117
  Receipt Date: 20070105
  Transmission Date: 20070707
  Serious: Yes (Hospitalization)
  Sender: FDA-Public Use
  Company Number: S06-USA-04908-01

PATIENT
  Age: 56 Year
  Sex: Female
  Weight: 66.1344 kg

DRUGS (14)
  1. LEXAPRO [Suspect]
     Indication: DEPRESSION
     Dosage: 10 MG QD PO
     Route: 048
     Dates: start: 20051028
  2. ORAVESCENT FENTANYL CITRATE [Suspect]
     Indication: BREAKTHROUGH PAIN
     Dosage: 600 MG PRN PO
     Route: 048
     Dates: start: 20050923, end: 20060619
  3. ORAVESCENT FENTANYL CITRATE [Suspect]
     Indication: BREAKTHROUGH PAIN
     Dosage: 400 MG PRN PO
     Route: 048
     Dates: start: 20060620, end: 20060720
  4. OXYCONTIN [Suspect]
     Dosage: 160 MG QD PO
     Route: 048
     Dates: start: 20040101
  5. LORTAB [Suspect]
     Dates: start: 20050829
  6. TYLENOL [Suspect]
  7. FLEXERIL [Suspect]
  8. SYNTHROID [Concomitant]
  9. LYRICA [Concomitant]
  10. COMBIVENT [Concomitant]
  11. SEROQUEL [Concomitant]
  12. ALBUTEROL [Concomitant]
  13. ASPIRIN [Concomitant]
  14. NEXIUM [Concomitant]

REACTIONS (19)
  - BLOOD PH INCREASED [None]
  - CARDIAC FAILURE CONGESTIVE [None]
  - DELIRIUM [None]
  - DELUSION [None]
  - HALLUCINATION [None]
  - LETHARGY [None]
  - MEMORY IMPAIRMENT [None]
  - MENTAL STATUS CHANGES [None]
  - MULTIPLE DRUG OVERDOSE [None]
  - OXYGEN SATURATION DECREASED [None]
  - PARANOIA [None]
  - PCO2 DECREASED [None]
  - PERICARDIAL EFFUSION [None]
  - PERICARDITIS [None]
  - PLEURAL EFFUSION [None]
  - PNEUMONIA [None]
  - PO2 DECREASED [None]
  - PYREXIA [None]
  - TACHYCARDIA [None]
